FAERS Safety Report 16811348 (Version 2)
Quarter: 2019Q3

REPORT INFORMATION
  Report Type: Spontaneous
  Country: US (occurrence: US)
  Receive Date: 20190916
  Receipt Date: 20190919
  Transmission Date: 20191005
  Serious: Yes (Other)
  Sender: FDA-Public Use
  Company Number: US-PFIZER INC-2019395536

PATIENT
  Age: 76 Year
  Sex: Female

DRUGS (1)
  1. ADVIL LIQUI-GELS [Suspect]
     Active Substance: IBUPROFEN
     Indication: FIBROMYALGIA
     Dosage: 400 MG, UNK (2 LIQUIGELS BY MOUTH)
     Route: 048

REACTIONS (4)
  - Product use issue [Unknown]
  - Overdose [Unknown]
  - Burn oral cavity [Unknown]
  - Product physical issue [Unknown]

NARRATIVE: CASE EVENT DATE: 20190911
